FAERS Safety Report 8237818-3 (Version None)
Quarter: 2012Q1

REPORT INFORMATION
  Report Type: 
  Country: None (occurrence: None)
  Receive Date: 20120327
  Receipt Date: 20120321
  Transmission Date: 20120608
  Serious: Yes (Hospitalization)
  Sender: FDA-Public Use
  Company Number: JP-BAYER-2011-012195

PATIENT
  Age: 79 Year
  Sex: Female

DRUGS (4)
  1. BEZATOL [Concomitant]
     Indication: BLOOD CHOLESTEROL INCREASED
     Dosage: UNK
     Route: 048
  2. ASPIRIN [Suspect]
     Indication: THROMBOSIS PROPHYLAXIS
     Dosage: UNK
     Route: 048
     Dates: start: 20100501, end: 20100601
  3. EPLERENONE [Suspect]
     Dosage: UNK
     Route: 048
     Dates: end: 20100601
  4. ANTIHYPERTENSIVES [Concomitant]
     Dosage: UNK
     Route: 048

REACTIONS (3)
  - HAEMOLYTIC ANAEMIA [None]
  - CHOLESTASIS [None]
  - PLATELET COUNT DECREASED [None]
